FAERS Safety Report 6518259-3 (Version None)
Quarter: 2009Q4

REPORT INFORMATION
  Report Type: 
  Country: None (occurrence: None)
  Receive Date: 20091223
  Receipt Date: 20091223
  Transmission Date: 20100525
  Serious: Yes (Life-Threatening, Hospitalization)
  Sender: FDA-Public Use
  Company Number: None

PATIENT
  Sex: Female
  Weight: 80.2867 kg

DRUGS (1)
  1. JANUVIA [Suspect]
     Indication: DIABETES MELLITUS
     Dosage: 25 MG 1X A DAY PO
     Route: 048
     Dates: start: 20091001

REACTIONS (5)
  - ABDOMINAL DISTENSION [None]
  - DRUG HYPERSENSITIVITY [None]
  - HALLUCINATION [None]
  - PRURITUS [None]
  - RENAL FAILURE [None]
